FAERS Safety Report 5693190-4 (Version None)
Quarter: 2008Q2

REPORT INFORMATION
  Report Type: 
  Country: None (occurrence: None)
  Receive Date: 20080403
  Receipt Date: 20080401
  Transmission Date: 20081010
  Serious: Yes (Hospitalization)
  Sender: FDA-Public Use
  Company Number: BE-BRISTOL-MYERS SQUIBB COMPANY-14130116

PATIENT
  Age: 63 Year
  Sex: Female

DRUGS (3)
  1. PACLITAXEL [Suspect]
     Indication: FEMALE REPRODUCTIVE NEOPLASM
     Dosage: FORM = INJECTION
     Route: 042
     Dates: start: 20080306
  2. CARBOPLATIN [Suspect]
     Indication: FEMALE REPRODUCTIVE NEOPLASM
     Dosage: FORM = INJECTION
     Route: 042
     Dates: start: 20080306
  3. PAZOPANIB [Suspect]
     Indication: FEMALE REPRODUCTIVE NEOPLASM
     Dosage: FORM = TABLETS
     Route: 048
     Dates: start: 20080306

REACTIONS (2)
  - NEUTROPENIA [None]
  - SKIN NECROSIS [None]
